FAERS Safety Report 26052507 (Version 1)
Quarter: 2025Q4

REPORT INFORMATION
  Report Type: Report from Study
  Country: US (occurrence: US)
  Receive Date: 20251117
  Receipt Date: 20251117
  Transmission Date: 20260117
  Serious: Yes (Other)
  Sender: ABBVIE
  Company Number: US-ABBVIE-6550436

PATIENT
  Age: 61 Year
  Sex: Male

DRUGS (2)
  1. LUPRON DEPOT [Suspect]
     Active Substance: LEUPROLIDE ACETATE
     Indication: Benign prostatic hyperplasia
     Dosage: 1 INJECTION
     Route: 065
     Dates: start: 1987, end: 2019
  2. PAXIL [Concomitant]
     Active Substance: PAROXETINE HYDROCHLORIDE
     Indication: Depression
     Dates: start: 1987, end: 2019

REACTIONS (15)
  - Multiple sclerosis [Recovered/Resolved]
  - Renal mass [Recovered/Resolved]
  - Adrenal disorder [Recovered/Resolved]
  - Anaemia [Recovered/Resolved]
  - Spinal osteoarthritis [Recovered/Resolved]
  - Osteoporosis [Recovered/Resolved]
  - Headache [Recovered/Resolved]
  - Depression [Recovered/Resolved]
  - Attention deficit hyperactivity disorder [Recovered/Resolved]
  - Mental disorder [Recovered/Resolved]
  - Mobility decreased [Recovered/Resolved]
  - Mass [Recovered/Resolved]
  - Hepatic mass [Recovered/Resolved]
  - Adrenal mass [Recovered/Resolved]
  - Gallbladder mass [Recovered/Resolved]

NARRATIVE: CASE EVENT DATE: 20180101
